FAERS Safety Report 7338676-1 (Version None)
Quarter: 2011Q1

REPORT INFORMATION
  Report Type: 
  Country: None (occurrence: None)
  Receive Date: 20110308
  Receipt Date: 20110301
  Transmission Date: 20110831
  Serious: Yes (Hospitalization)
  Sender: FDA-Public Use
  Company Number: A0890637A

PATIENT
  Age: 73 Year
  Sex: Female
  Weight: 90.5 kg

DRUGS (7)
  1. HYDROCHLOROTHIAZIDE [Concomitant]
  2. AVANDIA [Suspect]
     Dosage: 4MG PER DAY
     Route: 048
     Dates: start: 20040804, end: 20060816
  3. SIMVASTATIN [Concomitant]
  4. XENICAL [Concomitant]
  5. GLIMEPIRIDE [Concomitant]
  6. NORVASC [Concomitant]
  7. AVANDAMET [Suspect]
     Route: 048
     Dates: start: 20060101, end: 20080101

REACTIONS (4)
  - ISCHAEMIC CARDIOMYOPATHY [None]
  - MYOCARDIAL INFARCTION [None]
  - CARDIAC FAILURE CONGESTIVE [None]
  - CORONARY ARTERY DISEASE [None]
